FAERS Safety Report 21967555 (Version 2)
Quarter: 2023Q4

REPORT INFORMATION
  Report Type: Spontaneous
  Country: US (occurrence: US)
  Receive Date: 20230208
  Receipt Date: 20231124
  Transmission Date: 20240110
  Serious: Yes (Other)
  Sender: FDA-Public Use
  Company Number: US-PFIZER INC-PV202300024108

PATIENT
  Age: 35 Year
  Sex: Female

DRUGS (1)
  1. XELJANZ XR [Suspect]
     Active Substance: TOFACITINIB CITRATE
     Indication: Rheumatoid arthritis
     Dosage: 11 MG
     Route: 048
     Dates: start: 20220901

REACTIONS (6)
  - Systemic lupus erythematosus [Unknown]
  - Blood calcium abnormal [Unknown]
  - Migraine [Unknown]
  - Dyspepsia [Unknown]
  - Pain [Unknown]
  - Asthma [Unknown]
